FAERS Safety Report 9520021 (Version 1)
Quarter: 2013Q1

REPORT INFORMATION
  Report Type: Spontaneous
  Country: US (occurrence: None)
  Receive Date: 20130305
  Receipt Date: 20130305
  Transmission Date: 20140127
  Serious: No
  Sender: FDA-Public Use
  Company Number: 163-21880-11122351

PATIENT
  Age: 76 Year
  Sex: Male

DRUGS (24)
  1. REVLIMID ( LENALIDOMIDE) (25 MILLIGRAM, CAPSULES) [Suspect]
     Indication: PLASMA CELL MYELOMA
     Dosage: 25MG, 1 IN 1 D PO
     Route: 048
     Dates: start: 20110609, end: 20110623
  2. CIPROFLOXACIN (CIPROFLOXACIN) (TABLETS) [Concomitant]
  3. DECADRON (DEXAMETHASONE) [Concomitant]
  4. ALBUTEROL (SALBUTAMOL) [Concomitant]
  5. ASPIRIN (ACETYLSALICYLIC ACID) [Concomitant]
  6. FLONASE (FLUTICASONE PROPIONATE) [Concomitant]
  7. FISH OIL (FISH OIL) [Concomitant]
  8. LISINOPRIL (LISINOPRIL) [Concomitant]
  9. METOPROLOL (METOPROLOL) [Concomitant]
  10. MULTIVITAMINS (MULTIVITAMINS) (TABLETS) [Concomitant]
  11. OMEPRAZOLE (OMEPRAZOLE) [Concomitant]
  12. SIMVASTATIN (SIMVASTATIN) [Concomitant]
  13. B12 (CYANOCOBALAMIN) [Concomitant]
  14. VITAMIN E (TOCOPHEROL) [Concomitant]
  15. PROCHLORPERAZINE (PROCHLORPERAZINE) [Concomitant]
  16. CALCIUM CARBONATE (CALCIUM CARBONATE) [Concomitant]
  17. LOMOTIL (LOMOTIL) [Concomitant]
  18. LOPRESSOR (METOPROLOL TARTRATE) [Concomitant]
  19. PANTOPRAZOLE (PANTOPRAZOLE) [Concomitant]
  20. IMODIUM (LOPERAMIDE) [Concomitant]
  21. LORAZEPAM (LORAZEPAM) [Concomitant]
  22. ROXANOL (MORPHINE SULFATE) [Concomitant]
  23. IRON (IRON) [Concomitant]
  24. ZOMETA (ZOLEDRONIC ACID) [Concomitant]

REACTIONS (6)
  - Neuropathy peripheral [None]
  - Nausea [None]
  - Vomiting [None]
  - Asthenia [None]
  - Renal failure [None]
  - Hypocalcaemia [None]
